FAERS Safety Report 10886211 (Version 1)
Quarter: 2015Q1

REPORT INFORMATION
  Report Type: Other
  Country: KR (occurrence: KR)
  Receive Date: 20150304
  Receipt Date: 20150304
  Transmission Date: 20150721
  Serious: Yes (Other)
  Sender: FDA-Public Use
  Company Number: KR-ENDO PHARMACEUTICALS INC-PHEN20150004

PATIENT
  Age: 37 Year
  Sex: Female

DRUGS (2)
  1. PHENTERMINE HCL TABLETS [Suspect]
     Active Substance: PHENTERMINE HYDROCHLORIDE
     Indication: WEIGHT DECREASED
     Route: 065
  2. ORTHOSIPHON [Concomitant]
     Indication: WEIGHT DECREASED
     Route: 065

REACTIONS (2)
  - Cardiac ventricular thrombosis [Recovered/Resolved]
  - Cardiomyopathy [Recovered/Resolved]
